FAERS Safety Report 5258555-3 (Version None)
Quarter: 2007Q1

REPORT INFORMATION
  Report Type: 
  Country: None (occurrence: None)
  Receive Date: 20070305
  Receipt Date: 20070215
  Transmission Date: 20070707
  Serious: Yes (Hospitalization)
  Sender: FDA-Public Use
  Company Number: 236719

PATIENT
  Age: 79 Year
  Sex: Male
  Weight: 64 kg

DRUGS (2)
  1. XOLAIR [Suspect]
     Indication: ASTHMA
     Dosage: 375 MG, UNK, SUBCUTANEOUS
     Route: 058
     Dates: start: 20060322
  2. CORTISONE (CORTISONE ACETATE) [Concomitant]

REACTIONS (4)
  - BACTERIAL INFECTION [None]
  - BRONCHITIS [None]
  - LUNG INFECTION [None]
  - PNEUMONIA [None]
